FAERS Safety Report 5983778-5 (Version None)
Quarter: 2008Q4

REPORT INFORMATION
  Report Type: 
  Country: None (occurrence: None)
  Receive Date: 20081208
  Receipt Date: 20080913
  Transmission Date: 20090506
  Serious: No
  Sender: FDA-Public Use
  Company Number: US-AMGEN-KDL306353

PATIENT
  Sex: Male

DRUGS (2)
  1. ENBREL [Suspect]
     Indication: RHEUMATOID ARTHRITIS
     Route: 058
     Dates: start: 20000820
  2. METHOTREXATE [Concomitant]
     Route: 048
     Dates: start: 20000820

REACTIONS (2)
  - EXOSTOSIS [None]
  - INJECTION SITE PAIN [None]
